FAERS Safety Report 10035523 (Version 1)
Quarter: 2014Q1

REPORT INFORMATION
  Report Type: Spontaneous
  Country: US (occurrence: US)
  Receive Date: 20140325
  Receipt Date: 20140325
  Transmission Date: 20141002
  Serious: No
  Sender: FDA-Public Use
  Company Number: US-PFIZER INC-2014082827

PATIENT
  Age: 3 Year
  Sex: Female
  Weight: 12.25 kg

DRUGS (1)
  1. GENOTROPIN [Suspect]
     Dosage: 0.5 MG, EVERY BEDTIME
     Route: 058
     Dates: start: 201307

REACTIONS (3)
  - Nasopharyngitis [Recovered/Resolved]
  - Pyrexia [Recovered/Resolved]
  - Cough [Recovered/Resolved]
